FAERS Safety Report 6573281-6 (Version None)
Quarter: 2010Q1

REPORT INFORMATION
  Report Type: 
  Country: None (occurrence: None)
  Receive Date: 20100203
  Receipt Date: 20100203
  Transmission Date: 20100710
  Serious: Yes (Other)
  Sender: FDA-Public Use
  Company Number: None

PATIENT
  Sex: Female
  Weight: 63.5036 kg

DRUGS (2)
  1. POLYETHYLENE GLYCOL [Suspect]
     Dosage: ANY-SMALLEST AMOUNT ORAL FROM MID 1980'S TO PRESENT
     Route: 048
  2. POLYETHYLENE GLYCOL [Suspect]
     Dosage: SUTURE

REACTIONS (11)
  - ASTHENOPIA [None]
  - BURNING SENSATION [None]
  - DIZZINESS [None]
  - FEAR [None]
  - GAIT DISTURBANCE [None]
  - HEADACHE [None]
  - INFLAMMATION [None]
  - PRURITUS [None]
  - REACTION TO PRESERVATIVES [None]
  - SUTURE RELATED COMPLICATION [None]
  - VERTIGO [None]
